FAERS Safety Report 6745307-8 (Version None)
Quarter: 2010Q2

REPORT INFORMATION
  Report Type: 
  Country: None (occurrence: None)
  Receive Date: 20100528
  Receipt Date: 20100519
  Transmission Date: 20101027
  Serious: No
  Sender: FDA-Public Use
  Company Number: US-BIOGENIDEC-2010BI017014

PATIENT
  Age: 50 Year
  Sex: Female

DRUGS (2)
  1. TYSABRI [Suspect]
     Indication: MULTIPLE SCLEROSIS
     Route: 042
     Dates: start: 20080201, end: 20081201
  2. TYSABRI [Suspect]
     Route: 042
     Dates: start: 20100311

REACTIONS (4)
  - FEELING HOT [None]
  - FLUSHING [None]
  - HYPOTENSION [None]
  - SOMNOLENCE [None]
